FAERS Safety Report 15366021 (Version 2)
Quarter: 2018Q3

REPORT INFORMATION
  Report Type: Report from Study
  Country: RO (occurrence: RO)
  Receive Date: 20180910
  Receipt Date: 20180914
  Transmission Date: 20181010
  Serious: Yes (Hospitalization)
  Sender: FDA-Public Use
  Company Number: RO-ROCHE-2180788

PATIENT
  Age: 52 Year
  Sex: Female
  Weight: 74 kg

DRUGS (21)
  1. ESOMEPRAZOL [Concomitant]
     Active Substance: ESOMEPRAZOLE
     Indication: DYSPEPSIA
     Route: 042
     Dates: start: 20180821, end: 20180824
  2. PIRIDOXINA [Concomitant]
     Indication: DIARRHOEA
     Route: 042
     Dates: start: 20180821, end: 20180824
  3. GLICERINA BORAXATA [Concomitant]
     Indication: MUCOSAL INFLAMMATION
     Dosage: 1 OTHER
     Route: 061
     Dates: start: 20180723
  4. COBIMETINIB. [Suspect]
     Active Substance: COBIMETINIB
     Indication: BREAST CANCER METASTATIC
     Dosage: DATE OF MOST RECENT DOSE (60 MG) PRIOR TO AE ONSET : 28/AUG/2018
     Route: 048
     Dates: start: 20180124
  5. NAB?PACLITAXEL [Suspect]
     Active Substance: PACLITAXEL
     Indication: BREAST CANCER METASTATIC
     Dosage: DATE OF MOST RECENT DOSE (185 MG) PRIOR TO AE ONSET: 21/AUG/2018? ON 10/SEP/2018, SHE RECEIVED MOST
     Route: 042
     Dates: start: 20180122
  6. LOPERAMID [Concomitant]
     Active Substance: LOPERAMIDE
     Indication: DIARRHOEA
     Route: 048
     Dates: start: 20180719, end: 20180829
  7. PIRIDOXINA [Concomitant]
     Indication: PROPHYLAXIS
  8. GLUCOSUM [Concomitant]
     Indication: DIARRHOEA
     Route: 042
     Dates: start: 20180821, end: 20180824
  9. ATEZOLIZUMAB. [Suspect]
     Active Substance: ATEZOLIZUMAB
     Indication: BREAST CANCER METASTATIC
     Dosage: DATE OF MOST RECENT DOSE PRIOR TO AE ONSET: 21/AUG/2018?ON 03/SEP/2018, SHE RECEIVED MOST RECENT DOS
     Route: 042
     Dates: start: 20180122
  10. ADVANTAN [Concomitant]
     Active Substance: METHYLPREDNISOLONE ACEPONATE
     Indication: RASH
     Dosage: 1 OTHER
     Route: 061
     Dates: start: 20180305
  11. ACIDUM ASCORBICUM [Concomitant]
     Indication: PROPHYLAXIS
  12. SKINOREN [Concomitant]
     Active Substance: AZELAIC ACID
     Indication: DRY SKIN
     Route: 061
     Dates: start: 20180618
  13. GABAPENTIN. [Concomitant]
     Active Substance: GABAPENTIN
     Indication: NEUROPATHY PERIPHERAL
     Route: 048
     Dates: start: 20180611
  14. NATRII CHLORIDUM [Concomitant]
     Indication: DIARRHOEA
     Route: 042
     Dates: start: 20180821, end: 20180824
  15. GLUCOSUM [Concomitant]
     Indication: PROPHYLAXIS
  16. TIAMINA [Concomitant]
     Indication: DIARRHOEA
     Route: 042
     Dates: start: 20180821, end: 20180824
  17. NATRII CHLORIDUM [Concomitant]
     Indication: PROPHYLAXIS
  18. ALPRAZOLAM. [Concomitant]
     Active Substance: ALPRAZOLAM
     Indication: INSOMNIA
     Route: 048
     Dates: start: 20180821, end: 20180824
  19. ONDASETRON [Concomitant]
     Active Substance: ONDANSETRON
     Indication: NAUSEA
     Route: 048
     Dates: start: 20180723
  20. ACIDUM ASCORBICUM [Concomitant]
     Indication: DIARRHOEA
     Route: 042
     Dates: start: 20180821, end: 20180824
  21. TIAMINA [Concomitant]
     Indication: PROPHYLAXIS

REACTIONS (1)
  - Hypokalaemia [Recovered/Resolved]

NARRATIVE: CASE EVENT DATE: 20180903
